FAERS Safety Report 7439782-3 (Version None)
Quarter: 2011Q2

REPORT INFORMATION
  Report Type: 
  Country: None (occurrence: None)
  Receive Date: 20110427
  Receipt Date: 20110422
  Transmission Date: 20111010
  Serious: Yes (Disabling)
  Sender: FDA-Public Use
  Company Number: US-B.I. PHARMACEUTICALS,INC./RIDGEFIELD-2011-BP-08944BP

PATIENT
  Age: 73 Year
  Sex: Female
  Weight: 111.58 kg

DRUGS (9)
  1. ARIMIDEX [Concomitant]
     Dosage: 1 MG
  2. MAXZIDE [Concomitant]
  3. DIGOXIN [Concomitant]
     Dosage: 0.125 MG
  4. RAMIPRIL [Concomitant]
     Dosage: 10 MG
  5. METOPROLOL SUCCINATE EXTENDED RELEASE [Concomitant]
     Dosage: 50 MG
  6. PRADAXA [Suspect]
     Indication: ATRIAL FIBRILLATION
     Dosage: 300 MG
     Route: 048
     Dates: start: 20110314
  7. NEXIUM [Concomitant]
     Dosage: 20 MG
  8. PAXIL CR [Concomitant]
     Dosage: 25 MG
     Route: 048
  9. SIMVASTATIN [Concomitant]
     Dosage: 20 MG
     Route: 048

REACTIONS (2)
  - BREAST HAEMATOMA [None]
  - NIPPLE EXUDATE BLOODY [None]
